FAERS Safety Report 9474600 (Version 1)
Quarter: 2013Q3

REPORT INFORMATION
  Report Type: Spontaneous
  Country: GB (occurrence: GB)
  Receive Date: 20130823
  Receipt Date: 20130823
  Transmission Date: 20140515
  Serious: Yes (Other)
  Sender: FDA-Public Use
  Company Number: GB-GLAXOSMITHKLINE-B0916641A

PATIENT
  Age: 65 Year
  Sex: Female
  Weight: 98 kg

DRUGS (3)
  1. MALARONE [Suspect]
     Indication: FOREIGN TRAVEL
     Dosage: 1IUAX PER DAY
     Route: 048
     Dates: start: 20130708, end: 20130731
  2. BIMATOPROST [Concomitant]
     Indication: GLAUCOMA
  3. SYMBICORT [Concomitant]
     Indication: ASTHMA
     Route: 055

REACTIONS (6)
  - Diarrhoea [Recovered/Resolved]
  - Nausea [Recovered/Resolved]
  - Skin odour abnormal [Not Recovered/Not Resolved]
  - Parosmia [Not Recovered/Not Resolved]
  - Urine odour abnormal [Not Recovered/Not Resolved]
  - Abnormal faeces [Not Recovered/Not Resolved]
